FAERS Safety Report 4363824-5 (Version None)
Quarter: 2004Q2

REPORT INFORMATION
  Report Type: 
  Country: None (occurrence: None)
  Receive Date: 20040521
  Receipt Date: 20031203
  Transmission Date: 20050107
  Serious: No
  Sender: FDA-Public Use
  Company Number: CL03-030B

PATIENT
  Age: 17 Year
  Sex: Male

DRUGS (1)
  1. ALLERGENIC EXTRACT [Suspect]
     Dosage: SUB CU    BUILD UP PHASE
     Route: 058

REACTIONS (1)
  - ADVERSE EVENT [None]
